FAERS Safety Report 5966522-7 (Version None)
Quarter: 2008Q4

REPORT INFORMATION
  Report Type: 
  Country: None (occurrence: None)
  Receive Date: 20081125
  Receipt Date: 20081118
  Transmission Date: 20090506
  Serious: Yes (Other)
  Sender: FDA-Public Use
  Company Number: US-ASTRAZENECA-2008UW16767

PATIENT
  Age: 66 Year
  Sex: Female
  Weight: 108.9 kg

DRUGS (19)
  1. ARIMIDEX [Suspect]
     Indication: BREAST CANCER
     Route: 048
     Dates: start: 20061001
  2. METFORMIN HCL [Concomitant]
     Dosage: 5/500 TWO TABLETS BID
  3. ENALAPRIL MALEATE [Concomitant]
     Dosage: 5/12.5 MG DAILY
  4. ACTOS [Concomitant]
  5. TOPROL-XL [Concomitant]
     Route: 048
  6. OMEPRAZOLE [Concomitant]
     Indication: GASTROOESOPHAGEAL REFLUX DISEASE
     Route: 048
  7. ASPIRIN [Concomitant]
  8. M.V.I. [Concomitant]
     Route: 048
  9. VASERETIC [Concomitant]
     Dosage: 5/12.5 MG
     Route: 048
  10. CALCIUM [Concomitant]
     Route: 048
  11. METROCREAM [Concomitant]
  12. AMOXIL [Concomitant]
     Dosage: PRIOR TO SEEING HER DENTIST
  13. GLUCOSAMINE W/CHONDROITIN [Concomitant]
     Dosage: 750/600 MG TWO TIMES A DAY
  14. DETROL LA [Concomitant]
  15. GLYBURIDE [Concomitant]
  16. AMITRIPTYLINE HCL [Concomitant]
  17. VITAMIN B COMPLEX CAP [Concomitant]
  18. VICODIN [Concomitant]
  19. VITAMIN E [Concomitant]

REACTIONS (4)
  - ARTHRITIS [None]
  - LYMPHOEDEMA [None]
  - OSTEONECROSIS [None]
  - TRIGGER FINGER [None]
